FAERS Safety Report 6316013-9 (Version None)
Quarter: 2009Q3

REPORT INFORMATION
  Report Type: 
  Country: None (occurrence: None)
  Receive Date: 20090820
  Receipt Date: 20090811
  Transmission Date: 20100115
  Serious: Yes (Other)
  Sender: FDA-Public Use
  Company Number: BR-JNJFOC-20090804675

PATIENT
  Age: 50 Year
  Sex: Male

DRUGS (4)
  1. IMOSEC [Suspect]
     Dosage: HALF A TABLET TWO TIMES A DAY
     Route: 048
  2. IMOSEC [Suspect]
     Indication: DIARRHOEA
     Route: 048
  3. INSULIN [Concomitant]
     Indication: DIABETES MELLITUS
     Route: 065
  4. ARADOIS [Concomitant]
     Indication: RENAL DISORDER
     Route: 065

REACTIONS (4)
  - ABNORMAL FAECES [None]
  - HEPATIC FUNCTION ABNORMAL [None]
  - MEDICATION ERROR [None]
  - WRONG TECHNIQUE IN DRUG USAGE PROCESS [None]
